FAERS Safety Report 15863386 (Version 2)
Quarter: 2019Q4

REPORT INFORMATION
  Report Type: Spontaneous
  Country: CA (occurrence: CA)
  Receive Date: 20190124
  Receipt Date: 20191223
  Transmission Date: 20200122
  Serious: Yes (Death, Other)
  Sender: FDA-Public Use
  Company Number: CA-ALLERGAN-1902874US

PATIENT
  Sex: Male

DRUGS (1)
  1. BOTOX [Suspect]
     Active Substance: ONABOTULINUMTOXINA
     Indication: CEREBRAL PALSY
     Dosage: 800 UNITS, SINGLE
     Route: 030
     Dates: start: 20181115, end: 20181115

REACTIONS (3)
  - Off label use [Unknown]
  - Sepsis [Fatal]
  - Paralysis [Unknown]

NARRATIVE: CASE EVENT DATE: 201901
